FAERS Safety Report 14224133 (Version 1)
Quarter: 2017Q4

REPORT INFORMATION
  Report Type: Spontaneous
  Country: GB (occurrence: None)
  Receive Date: 20171124
  Receipt Date: 20171124
  Transmission Date: 20180321
  Serious: No
  Sender: FDA-Public Use
  Company Number: None

PATIENT
  Age: 19 Year
  Sex: Female
  Weight: 56 kg

DRUGS (1)
  1. NEXPLANON [Suspect]
     Active Substance: ETONOGESTREL
     Indication: CONTRACEPTION
     Dosage: GIVEN INTO/UNDER THE SKIN

REACTIONS (5)
  - Pain [None]
  - Hypoaesthesia [None]
  - Paraesthesia [None]
  - Sensory disturbance [None]
  - Arthralgia [None]

NARRATIVE: CASE EVENT DATE: 20171114
